FAERS Safety Report 13073618 (Version 1)
Quarter: 2016Q4

REPORT INFORMATION
  Report Type: Spontaneous
  Country: US (occurrence: US)
  Receive Date: 20161229
  Receipt Date: 20161229
  Transmission Date: 20170207
  Serious: Yes (Hospitalization)
  Sender: FDA-Public Use
  Company Number: US-BAXALTA-2016BLT009532

PATIENT
  Age: 18 Year
  Sex: Male
  Weight: 128.1 kg

DRUGS (6)
  1. ONCASPAR [Suspect]
     Active Substance: PEGASPARGASE
     Indication: ACUTE LYMPHOCYTIC LEUKAEMIA
     Dosage: 6.125 MG, DAY 43
     Route: 042
     Dates: start: 20161125, end: 20161125
  2. MERCAPTOPURINE. [Suspect]
     Active Substance: MERCAPTOPURINE
     Indication: ACUTE LYMPHOCYTIC LEUKAEMIA
     Dosage: 150 MG, 1X A DAY
     Route: 048
     Dates: start: 20161111
  3. ONCASPAR [Suspect]
     Active Substance: PEGASPARGASE
     Dosage: 6.125 MG, DAY 15
     Route: 042
     Dates: start: 20161009, end: 20161009
  4. VINCRISTINE [Suspect]
     Active Substance: VINCRISTINE
     Indication: ACUTE LYMPHOCYTIC LEUKAEMIA
     Dosage: 2 MG, DAY 15, 22, 43, 50
     Route: 042
     Dates: start: 20161027
  5. RUXOLITINIB [Suspect]
     Active Substance: RUXOLITINIB
     Indication: ACUTE LYMPHOCYTIC LEUKAEMIA
     Dosage: 80 MG, 2X A DAY
     Route: 048
     Dates: start: 20161111
  6. METHOTREXATE. [Suspect]
     Active Substance: METHOTREXATE
     Indication: ACUTE LYMPHOCYTIC LEUKAEMIA
     Dosage: 15 MG, DAY 1, 8, 15, 22
     Route: 037

REACTIONS (1)
  - Hypersensitivity [Recovered/Resolved]

NARRATIVE: CASE EVENT DATE: 20161125
